FAERS Safety Report 21265340 (Version 1)
Quarter: 2022Q3

REPORT INFORMATION
  Report Type: Spontaneous
  Country: US (occurrence: None)
  Receive Date: 20220826
  Receipt Date: 20220826
  Transmission Date: 20221027
  Serious: Yes (Hospitalization)
  Sender: FDA-Public Use
  Company Number: None

PATIENT
  Age: 78 Year
  Sex: Female
  Weight: 61.6 kg

DRUGS (1)
  1. SILTUXIMAB [Suspect]
     Active Substance: SILTUXIMAB
     Indication: Pancreatic carcinoma
     Dosage: 221.5ML EVERY 21 DAYS IV
     Route: 042
     Dates: start: 20220728, end: 20220817

REACTIONS (1)
  - Weight increased [None]

NARRATIVE: CASE EVENT DATE: 20220824
